FAERS Safety Report 10683327 (Version 1)
Quarter: 2014Q4

REPORT INFORMATION
  Report Type: Spontaneous
  Country: US (occurrence: US)
  Receive Date: 20141230
  Receipt Date: 20141230
  Transmission Date: 20150529
  Serious: Yes (Death, Other)
  Sender: FDA-Public Use
  Company Number: US-GLAXOSMITHKLINE-US2014GSK041158

PATIENT
  Age: 73 Year
  Sex: Male

DRUGS (2)
  1. VOTRIENT [Suspect]
     Active Substance: PAZOPANIB HYDROCHLORIDE
     Indication: RENAL CANCER STAGE IV
     Dosage: UNK
     Dates: start: 201401
  2. VOTRIENT [Suspect]
     Active Substance: PAZOPANIB HYDROCHLORIDE
     Indication: RENAL CANCER

REACTIONS (3)
  - Metastasis [Unknown]
  - Death [Fatal]
  - Cough [Unknown]

NARRATIVE: CASE EVENT DATE: 20140324
